FAERS Safety Report 19928066 (Version 1)
Quarter: 2021Q4

REPORT INFORMATION
  Report Type: Report from Study
  Country: US (occurrence: US)
  Receive Date: 20211007
  Receipt Date: 20211007
  Transmission Date: 20220303
  Serious: Yes (Other)
  Sender: FDA-Public Use
  Company Number: US-NOVARTISPH-NVSC2021US227205

PATIENT
  Sex: Male
  Weight: 80.73 kg

DRUGS (3)
  1. LAMPRENE [Suspect]
     Active Substance: CLOFAZIMINE
     Indication: Mycobacterium abscessus infection
     Dosage: UNK
     Route: 048
     Dates: start: 20210214, end: 20210525
  2. AZITHROMYCIN ANHYDROUS [Suspect]
     Active Substance: AZITHROMYCIN ANHYDROUS
     Indication: Mycobacterium abscessus infection
     Dosage: 250 MG, QD
     Route: 065
     Dates: start: 20210214, end: 20210525
  3. CEFOXITIN [Concomitant]
     Active Substance: CEFOXITIN SODIUM
     Indication: Mycobacterium abscessus infection
     Dosage: 4 G, Q8H
     Route: 065
     Dates: start: 20210214, end: 20210525

REACTIONS (1)
  - Tachycardia [Not Recovered/Not Resolved]
